FAERS Safety Report 4973662-8 (Version None)
Quarter: 2006Q2

REPORT INFORMATION
  Report Type: 
  Country: None (occurrence: None)
  Receive Date: 20060414
  Receipt Date: 20050822
  Transmission Date: 20061013
  Serious: Yes (Hospitalization)
  Sender: FDA-Public Use
  Company Number: US-MERCK-0508USA03653

PATIENT
  Age: 60 Year
  Sex: Male
  Weight: 77 kg

DRUGS (11)
  1. VIOXX [Suspect]
     Indication: ARTHRALGIA
     Route: 048
     Dates: start: 20020322, end: 20040901
  2. CLARITIN [Concomitant]
     Route: 065
  3. METOPROLOL [Concomitant]
     Route: 065
  4. ZESTRIL [Concomitant]
     Route: 065
  5. PLAVIX [Concomitant]
     Route: 065
  6. LIPITOR [Concomitant]
     Route: 065
  7. METHOTREXATE [Concomitant]
     Route: 065
  8. PREDNISONE [Concomitant]
     Route: 065
  9. PRINIVIL [Concomitant]
     Route: 065
  10. LEVAQUIN [Concomitant]
     Route: 065
  11. ACETAMINOPHEN AND HYDROCODONE BITARTRATE [Concomitant]
     Route: 065

REACTIONS (6)
  - ACUTE MYOCARDIAL INFARCTION [None]
  - ARTHRALGIA [None]
  - CORONARY ARTERY DISEASE [None]
  - DIVERTICULITIS [None]
  - HEAD INJURY [None]
  - HYPERCHOLESTEROLAEMIA [None]
